FAERS Safety Report 4880372-4 (Version None)
Quarter: 2006Q1

REPORT INFORMATION
  Report Type: 
  Country: None (occurrence: None)
  Receive Date: 20060111
  Receipt Date: 20051228
  Transmission Date: 20060701
  Serious: Yes (Hospitalization)
  Sender: FDA-Public Use
  Company Number: 2005-02030

PATIENT
  Age: 66 Year
  Sex: Male

DRUGS (12)
  1. VELCADE [Suspect]
     Indication: MULTIPLE MYELOMA
     Dosage: 1/WEEK,
  2. AVANDIA [Suspect]
     Dosage: SEE IMAGE
     Dates: end: 20050609
  3. AVANDIA [Suspect]
     Dosage: SEE IMAGE
     Dates: start: 20050609
  4. COUMADIN [Concomitant]
  5. GLIPIZIDE [Concomitant]
  6. DIGOXIN [Concomitant]
  7. NEXIUM [Concomitant]
  8. LISINOPRIL [Concomitant]
  9. ASPIRIN [Concomitant]
  10. LASIX [Concomitant]
  11. METOPROLOL (METOPROLOL) [Concomitant]
  12. INSULIN [Concomitant]

REACTIONS (21)
  - BLOOD SODIUM DECREASED [None]
  - BRADYCARDIA [None]
  - CARDIOMEGALY [None]
  - CHILLS [None]
  - CONSTIPATION [None]
  - DIPLOPIA [None]
  - FALL [None]
  - GASTROINTESTINAL DISORDER [None]
  - HEART RATE IRREGULAR [None]
  - HYPOGLYCAEMIA [None]
  - HYPOREFLEXIA [None]
  - HYPOTENSION [None]
  - INTERNATIONAL NORMALISED RATIO INCREASED [None]
  - LOSS OF CONSCIOUSNESS [None]
  - NASOPHARYNGITIS [None]
  - PRODUCTIVE COUGH [None]
  - PROTEIN URINE PRESENT [None]
  - THROMBOCYTOPENIA [None]
  - URINE KETONE BODY PRESENT [None]
  - WHITE BLOOD CELL COUNT INCREASED [None]
  - WHITE BLOOD CELLS URINE POSITIVE [None]
